FAERS Safety Report 8847997 (Version 1)
Quarter: 2012Q4

REPORT INFORMATION
  Report Type: 
  Country: US (occurrence: US)
  Receive Date: 20121018
  Receipt Date: 20121018
  Transmission Date: 20130627
  Serious: Yes (Other)
  Sender: FDA-Public Use
  Company Number: US-ROCHE-1141250

PATIENT
  Sex: Female
  Weight: 51.8 kg

DRUGS (2)
  1. PROTROPIN [Suspect]
     Indication: TURNER^S SYNDROME
     Route: 058
  2. PROVENTIL [Concomitant]

REACTIONS (2)
  - Hand fracture [Recovering/Resolving]
  - Weight increased [Recovering/Resolving]
